FAERS Safety Report 10193784 (Version 1)
Quarter: 2014Q2

REPORT INFORMATION
  Report Type: Spontaneous
  Country: US (occurrence: US)
  Receive Date: 20140524
  Receipt Date: 20140524
  Transmission Date: 20141212
  Serious: No
  Sender: FDA-Public Use
  Company Number: US-SANOFI-AVENTIS-2013SA047290

PATIENT
  Sex: Female

DRUGS (8)
  1. LANTUS SOLOSTAR [Suspect]
     Indication: TYPE 1 DIABETES MELLITUS
     Dosage: DOSE:40 UNIT(S)
  2. LANTUS SOLOSTAR [Suspect]
     Indication: TYPE 1 DIABETES MELLITUS
     Dosage: DOSE:30 UNIT(S)
  3. SOLOSTAR [Suspect]
     Indication: TYPE 1 DIABETES MELLITUS
  4. LISINOPRIL [Concomitant]
  5. INSULIN, REGULAR [Concomitant]
     Dosage: DOSE:20 UNIT(S)
  6. METFORMIN [Concomitant]
  7. NEURONTIN [Concomitant]
  8. HYDROCHLOROTHIAZIDE [Concomitant]

REACTIONS (3)
  - Dyspnoea [Unknown]
  - Speech disorder [Unknown]
  - Blood glucose decreased [Unknown]
